FAERS Safety Report 5769297-X (Version None)
Quarter: 2008Q2

REPORT INFORMATION
  Report Type: 
  Country: None (occurrence: None)
  Receive Date: 20080612
  Receipt Date: 20080320
  Transmission Date: 20081010
  Serious: No
  Sender: FDA-Public Use
  Company Number: US-ABBOTT-08P-163-0443963-00

PATIENT
  Age: 71 Year
  Sex: Female
  Weight: 74.002 kg

DRUGS (2)
  1. HUMIRA [Suspect]
     Indication: PSORIATIC ARTHROPATHY
     Dates: start: 20060101
  2. HUMIRA [Suspect]
     Indication: PSORIASIS

REACTIONS (2)
  - INJECTION SITE IRRITATION [None]
  - INJECTION SITE REACTION [None]
